FAERS Safety Report 13145313 (Version 1)
Quarter: 2017Q1

REPORT INFORMATION
  Report Type: Spontaneous
  Country: IN (occurrence: IN)
  Receive Date: 20170124
  Receipt Date: 20170124
  Transmission Date: 20170428
  Serious: Yes (Death, Life-Threatening, Hospitalization, Other)
  Sender: FDA-Public Use
  Company Number: IN-DRREDDYS-USA/IND/17/0086432

PATIENT
  Age: 64 Year
  Sex: Male

DRUGS (2)
  1. CLOPIDOGREL [Suspect]
     Active Substance: CLOPIDOGREL BISULFATE
     Indication: ANTIPLATELET THERAPY
     Route: 065
  2. ASPIRIN. [Suspect]
     Active Substance: ASPIRIN
     Indication: ANTIPLATELET THERAPY
     Route: 065

REACTIONS (11)
  - Skin erosion [Unknown]
  - Melaena [Unknown]
  - Depressed level of consciousness [Unknown]
  - Coagulopathy [Fatal]
  - Thrombocytopenia [Fatal]
  - Heart rate increased [Unknown]
  - Hypotension [Unknown]
  - Hepatitis fulminant [Fatal]
  - Vessel puncture site haematoma [Unknown]
  - Blister [Unknown]
  - Haemoglobin decreased [Unknown]
